FAERS Safety Report 18896211 (Version 2)
Quarter: 2021Q1

REPORT INFORMATION
  Report Type: Report from Study
  Country: ZA (occurrence: ZA)
  Receive Date: 20210216
  Receipt Date: 20210225
  Transmission Date: 20210420
  Serious: No
  Sender: FDA-Public Use
  Company Number: ZA-EMD SERONO-9170121

PATIENT
  Age: 24 Year
  Sex: Female

DRUGS (6)
  1. CO PRITOR [Concomitant]
     Active Substance: HYDROCHLOROTHIAZIDE\TELMISARTAN
     Indication: HYPERTENSION
     Route: 048
     Dates: end: 20200622
  2. NAPROXEN. [Concomitant]
     Active Substance: NAPROXEN
     Indication: ARTHRITIS
     Route: 048
     Dates: end: 20200622
  3. FEDALOC [Concomitant]
     Active Substance: NIFEDIPINE
     Indication: HYPERTENSION
     Route: 048
     Dates: start: 20200622
  4. CHELA FER [Concomitant]
     Active Substance: FERROUS BISGLYCINATE\FOLIC ACID
     Indication: PREGNANCY
     Route: 048
     Dates: start: 20200622
  5. REBIF [Suspect]
     Active Substance: INTERFERON BETA-1A
     Indication: MULTIPLE SCLEROSIS
     Route: 058
     Dates: start: 20200116, end: 20200617
  6. DULOXETINE. [Concomitant]
     Active Substance: DULOXETINE
     Indication: FIBROMYALGIA
     Route: 048
     Dates: end: 20200622

REACTIONS (5)
  - Paraesthesia [Unknown]
  - Maternal exposure during pregnancy [Recovered/Resolved]
  - Somnolence [Unknown]
  - Malaise [Unknown]
  - Live birth [Recovered/Resolved]

NARRATIVE: CASE EVENT DATE: 20200505
